FAERS Safety Report 17078473 (Version 1)
Quarter: 2019Q4

REPORT INFORMATION
  Report Type: Report from Study
  Country: US (occurrence: US)
  Receive Date: 20191126
  Receipt Date: 20191126
  Transmission Date: 20200122
  Serious: Yes (Other)
  Sender: FDA-Public Use
  Company Number: US-BRISTOL-MYERS SQUIBB COMPANY-BMS-2019-111681

PATIENT
  Age: 61 Year
  Sex: Male
  Weight: 73.1 kg

DRUGS (3)
  1. IPILIMUMAB [Suspect]
     Active Substance: IPILIMUMAB
     Indication: BLADDER TRANSITIONAL CELL CARCINOMA
     Dosage: 72.6 MILLIGRAM
     Route: 042
     Dates: start: 20190913
  2. NIVOLUMAB [Suspect]
     Active Substance: NIVOLUMAB
     Indication: BLADDER TRANSITIONAL CELL CARCINOMA
     Dosage: 220 MILLIGRAM
     Route: 042
     Dates: start: 20190913
  3. CABOZANTINIB [Suspect]
     Active Substance: CABOZANTINIB
     Indication: BLADDER TRANSITIONAL CELL CARCINOMA
     Dosage: 280 MILLIGRAM, QD
     Route: 048
     Dates: start: 20190913, end: 20191024

REACTIONS (1)
  - Anal fistula [Not Recovered/Not Resolved]

NARRATIVE: CASE EVENT DATE: 20191024
